FAERS Safety Report 17904022 (Version 3)
Quarter: 2020Q3

REPORT INFORMATION
  Report Type: Spontaneous
  Country: US (occurrence: US)
  Receive Date: 20200617
  Receipt Date: 20200928
  Transmission Date: 20201103
  Serious: Yes (Other)
  Sender: FDA-Public Use
  Company Number: US-GILEAD-2020-0472586

PATIENT
  Sex: Female
  Weight: 56.69 kg

DRUGS (25)
  1. VIREAD [Suspect]
     Active Substance: TENOFOVIR DISOPROXIL FUMARATE
     Dosage: UNK
     Route: 048
     Dates: start: 2001, end: 2002
  2. AMPICILLIN [Concomitant]
     Active Substance: AMPICILLIN
  3. FAMOTIDINE. [Concomitant]
     Active Substance: FAMOTIDINE
  4. PREDNISOLONE. [Concomitant]
     Active Substance: PREDNISOLONE
  5. FAMOTIDINE. [Concomitant]
     Active Substance: FAMOTIDINE
  6. TRUVADA [Suspect]
     Active Substance: EMTRICITABINE\TENOFOVIR DISOPROXIL FUMARATE
     Dosage: UNK
     Route: 048
     Dates: start: 20100506, end: 201509
  7. COMPLERA [Suspect]
     Active Substance: EMTRICITABINE\RILPIVIRINE HYDROCHLORIDE\TENOFOVIR DISOPROXIL FUMARATE
     Indication: HIV INFECTION
     Route: 048
  8. ACETAMINOPHEN. [Concomitant]
     Active Substance: ACETAMINOPHEN
  9. ACYCLOVIR [ACICLOVIR SODIUM] [Concomitant]
     Active Substance: ACYCLOVIR
  10. BACTRIM [Concomitant]
     Active Substance: SULFAMETHOXAZOLE\TRIMETHOPRIM
  11. OMEPRAZOLE. [Concomitant]
     Active Substance: OMEPRAZOLE
  12. VANCOMYCIN [Concomitant]
     Active Substance: VANCOMYCIN
  13. VALACYCLOVIR [VALACICLOVIR HYDROCHLORIDE] [Concomitant]
     Active Substance: VALACYCLOVIR HYDROCHLORIDE
  14. VIREAD [Suspect]
     Active Substance: TENOFOVIR DISOPROXIL FUMARATE
     Indication: HIV INFECTION
     Dosage: UNK
     Route: 048
     Dates: end: 201509
  15. LANSOPRAZOLE. [Concomitant]
     Active Substance: LANSOPRAZOLE
  16. GANCICLOVIR. [Concomitant]
     Active Substance: GANCICLOVIR
  17. STRIBILD [Suspect]
     Active Substance: COBICISTAT\ELVITEGRAVIR\EMTRICITABINE\TENOFOVIR DISOPROXIL FUMARATE
     Indication: HIV INFECTION
     Dosage: UNK
     Route: 048
     Dates: start: 201509, end: 2020
  18. TETRACYCLINE [Concomitant]
     Active Substance: TETRACYCLINE
  19. TRUVADA [Suspect]
     Active Substance: EMTRICITABINE\TENOFOVIR DISOPROXIL FUMARATE
     Indication: HIV INFECTION
     Dosage: UNK
     Route: 048
     Dates: start: 2008, end: 201509
  20. PENICILLIN [BENZYLPENICILLIN POTASSIUM;BENZYLPENICILLIN SODIUM] [Concomitant]
  21. ASPIRIN [ACETYLSALICYLIC ACID] [Concomitant]
     Active Substance: ASPIRIN
  22. RANITIDINE. [Concomitant]
     Active Substance: RANITIDINE
  23. AMOXICILLIN. [Concomitant]
     Active Substance: AMOXICILLIN
  24. MUPIROCIN. [Concomitant]
     Active Substance: MUPIROCIN
  25. LATANOPROST. [Concomitant]
     Active Substance: LATANOPROST

REACTIONS (5)
  - Hand fracture [Unknown]
  - Foot fracture [Unknown]
  - Osteopenia [Not Recovered/Not Resolved]
  - Bone density decreased [Not Recovered/Not Resolved]
  - Osteoporosis [Not Recovered/Not Resolved]

NARRATIVE: CASE EVENT DATE: 2002
